FAERS Safety Report 19407788 (Version 1)
Quarter: 2021Q2

REPORT INFORMATION
  Report Type: Spontaneous
  Country: US (occurrence: US)
  Receive Date: 20210612
  Receipt Date: 20210612
  Transmission Date: 20210717
  Serious: Yes (Hospitalization)
  Sender: FDA-Public Use
  Company Number: US-MACLEODS PHARMACEUTICALS US LTD-MAC2021031401

PATIENT

DRUGS (3)
  1. AMPICILLIN [Concomitant]
     Active Substance: AMPICILLIN
     Indication: ENCEPHALITIS VIRAL
     Dosage: UNK
     Route: 065
  2. ACYCLOVIR. [Suspect]
     Active Substance: ACYCLOVIR
     Indication: ENCEPHALITIS VIRAL
     Dosage: 5 MILLIGRAM/KILOGRAM, QD
     Route: 042
  3. VALACICLOVIR [Suspect]
     Active Substance: VALACYCLOVIR HYDROCHLORIDE
     Indication: HERPES ZOSTER
     Dosage: EVERY DAY
     Route: 048

REACTIONS (7)
  - Mental impairment [Recovered/Resolved]
  - Pneumonia [Recovered/Resolved]
  - Urinary incontinence [Recovered/Resolved]
  - Overdose [Unknown]
  - Encephalopathy [Recovered/Resolved]
  - Neurotoxicity [Recovered/Resolved]
  - Encephalitis viral [Recovered/Resolved]
